FAERS Safety Report 10035545 (Version 1)
Quarter: 2014Q1

REPORT INFORMATION
  Report Type: Spontaneous
  Country: US (occurrence: US)
  Receive Date: 20140325
  Receipt Date: 20140325
  Transmission Date: 20141002
  Serious: No
  Sender: FDA-Public Use
  Company Number: US-PFIZER INC-2014083333

PATIENT
  Age: 53 Year
  Sex: Female
  Weight: 74.83 kg

DRUGS (2)
  1. CHANTIX [Suspect]
     Indication: SMOKING CESSATION THERAPY
     Dosage: 0.5 MG, 2X/DAY
     Dates: start: 20140308
  2. METHADONE [Concomitant]
     Indication: PAIN
     Dosage: 10 MG, 4X/DAY

REACTIONS (1)
  - Pain in jaw [Not Recovered/Not Resolved]
